FAERS Safety Report 8829441 (Version 1)
Quarter: 2012Q4

REPORT INFORMATION
  Report Type: Spontaneous
  Country: US (occurrence: None)
  Receive Date: 20121005
  Receipt Date: 20121005
  Transmission Date: 20130627
  Serious: Yes (Hospitalization)
  Sender: FDA-Public Use
  Company Number: None

PATIENT
  Sex: Male
  Weight: 45.4 kg

DRUGS (1)
  1. DOCETAXEL (TAXOTERE) [Suspect]
     Dates: start: 20120803

REACTIONS (4)
  - Dehydration [None]
  - Diarrhoea [None]
  - Hyponatraemia [None]
  - Thrombocytopenia [None]
